FAERS Safety Report 5241483-7 (Version None)
Quarter: 2007Q1

REPORT INFORMATION
  Report Type: 
  Country: None (occurrence: None)
  Receive Date: 20070220
  Receipt Date: 20070216
  Transmission Date: 20070707
  Serious: Yes (Other)
  Sender: FDA-Public Use
  Company Number: US-GLAXOSMITHKLINE-A0639767A

PATIENT
  Age: 34 Year
  Sex: Female

DRUGS (2)
  1. COMBIVIR [Suspect]
     Indication: HIV INFECTION
     Dosage: 2TABS PER DAY
     Route: 048
     Dates: start: 20060808
  2. VIRACEPT [Concomitant]
     Dosage: 2500MG PER DAY
     Route: 048
     Dates: start: 20060808

REACTIONS (3)
  - DRUG EXPOSURE DURING PREGNANCY [None]
  - STILLBIRTH [None]
  - UMBILICAL CORD ABNORMALITY [None]
